FAERS Safety Report 9437318 (Version 2)
Quarter: 2013Q4

REPORT INFORMATION
  Report Type: Spontaneous
  Country: US (occurrence: US)
  Receive Date: 20130802
  Receipt Date: 20131126
  Transmission Date: 20140711
  Serious: No
  Sender: FDA-Public Use
  Company Number: US-RANBAXY-2013US-71929

PATIENT
  Age: 82 Year
  Sex: Male

DRUGS (6)
  1. AMOXICILLIN [Suspect]
     Indication: HELICOBACTER INFECTION
     Dosage: 500 MG, BID
     Route: 065
  2. CLARITHROMYCIN [Interacting]
     Indication: HELICOBACTER INFECTION
     Dosage: 500 MG, BID
     Route: 065
  3. OMEPRAZOLE [Interacting]
     Indication: HELICOBACTER INFECTION
     Dosage: 20 MG, BID
     Route: 065
  4. INSULIN DETEMIR [Interacting]
     Indication: TYPE 2 DIABETES MELLITUS
     Dosage: 32 UNITS QD
     Route: 065
  5. INSULIN DETEMIR [Interacting]
     Indication: TYPE 2 DIABETES MELLITUS
     Dosage: 15 UNITS AT BEDTIME
     Route: 065
  6. INSULIN ASPART [Concomitant]
     Indication: TYPE 2 DIABETES MELLITUS
     Dosage: UNK
     Route: 065

REACTIONS (2)
  - Hypoglycaemia [Recovered/Resolved]
  - Drug interaction [Recovered/Resolved]
